FAERS Safety Report 11031335 (Version 2)
Quarter: 2015Q2

REPORT INFORMATION
  Report Type: Spontaneous
  Country: US (occurrence: US)
  Receive Date: 20150415
  Receipt Date: 20150424
  Transmission Date: 20150821
  Serious: Yes (Hospitalization, Other)
  Sender: FDA-Public Use
  Company Number: US-PFIZER INC-2015125883

PATIENT
  Age: 64 Year
  Sex: Female
  Weight: 66 kg

DRUGS (6)
  1. FLAGYL [Suspect]
     Active Substance: METRONIDAZOLE\METRONIDAZOLE HYDROCHLORIDE
     Indication: URINARY TRACT INFECTION
     Dosage: 500 MG, 3X/DAY
     Route: 048
     Dates: start: 20150402, end: 20150402
  2. DILAUDID [Concomitant]
     Active Substance: HYDROMORPHONE HYDROCHLORIDE
     Indication: PAIN
     Dosage: UNK
  3. CLONAZEPAM. [Concomitant]
     Active Substance: CLONAZEPAM
     Indication: SEIZURE
     Dosage: 1 MG, UNK (HALF TAB IN THE MORNING AND WHOLE TAB IN NIGHT)
  4. CLONAZEPAM. [Concomitant]
     Active Substance: CLONAZEPAM
     Indication: EPILEPSY
  5. LAMICTAL [Concomitant]
     Active Substance: LAMOTRIGINE
     Indication: EPILEPSY
  6. CYMBALTA [Concomitant]
     Active Substance: DULOXETINE HYDROCHLORIDE
     Indication: DEPRESSION
     Dosage: 60 MG, UNK

REACTIONS (21)
  - Agitation [Unknown]
  - Musculoskeletal stiffness [Unknown]
  - Swollen tongue [Unknown]
  - Tremor [Unknown]
  - Fear [Unknown]
  - Dizziness [Unknown]
  - Abnormal behaviour [Unknown]
  - Eructation [Unknown]
  - Tongue discolouration [Unknown]
  - Thermal burn [Unknown]
  - Pharyngeal erythema [Unknown]
  - Seizure [Unknown]
  - Crying [Unknown]
  - Mobility decreased [Unknown]
  - Oral mucosal erythema [Unknown]
  - Swelling [Unknown]
  - Feeling abnormal [Unknown]
  - Erythema [Unknown]
  - Vomiting [Unknown]
  - Glossodynia [Unknown]
  - Oropharyngeal pain [Unknown]

NARRATIVE: CASE EVENT DATE: 201504
